FAERS Safety Report 6220089-7 (Version None)
Quarter: 2009Q2

REPORT INFORMATION
  Report Type: 
  Country: None (occurrence: None)
  Receive Date: 20090609
  Receipt Date: 20090527
  Transmission Date: 20091009
  Serious: Yes (Hospitalization)
  Sender: FDA-Public Use
  Company Number: KR-ELI_LILLY_AND_COMPANY-KR200905002665

PATIENT
  Age: 81 Year
  Sex: Female

DRUGS (2)
  1. HUMALOG MIX 75/25 [Suspect]
     Indication: TYPE 2 DIABETES MELLITUS
     Dosage: 15 IU, EACH MORNING
     Route: 058
     Dates: start: 20080101
  2. HUMALOG MIX 75/25 [Suspect]
     Dosage: 10 IU, EACH EVENING
     Route: 058
     Dates: start: 20080101

REACTIONS (4)
  - DIZZINESS [None]
  - DYSPNOEA [None]
  - HYPOAESTHESIA [None]
  - THROMBOSIS [None]
